FAERS Safety Report 5047973-4 (Version None)
Quarter: 2006Q3

REPORT INFORMATION
  Report Type: 
  Country: None (occurrence: None)
  Receive Date: 20060711
  Receipt Date: 20060630
  Transmission Date: 20061208
  Serious: Yes (Life-Threatening, Hospitalization)
  Sender: FDA-Public Use
  Company Number: JP-BRISTOL-MYERS SQUIBB COMPANY-13429766

PATIENT
  Age: 38 Year
  Sex: Female

DRUGS (2)
  1. TAXOL [Suspect]
     Indication: OVARIAN CANCER
     Route: 041
     Dates: start: 20060627, end: 20060627
  2. HERCEPTIN [Suspect]
     Indication: OVARIAN CANCER
     Route: 041
     Dates: start: 20060626, end: 20060626

REACTIONS (3)
  - CARDIO-RESPIRATORY ARREST [None]
  - FALL [None]
  - SHOCK [None]
